FAERS Safety Report 4688748-5 (Version None)
Quarter: 2005Q2

REPORT INFORMATION
  Report Type: 
  Country: None (occurrence: None)
  Receive Date: 20050613
  Receipt Date: 20050511
  Transmission Date: 20051028
  Serious: Yes (Hospitalization)
  Sender: FDA-Public Use
  Company Number: PHBS2005DK06768

PATIENT
  Sex: Male

DRUGS (3)
  1. DICLOFENAC SODIUM [Suspect]
     Indication: PAIN
     Route: 048
  2. ACETAMINOPHEN [Concomitant]
     Indication: PAIN
  3. LYRICA [Concomitant]
     Indication: PAIN

REACTIONS (1)
  - CALLUS FORMATION DELAYED [None]
